FAERS Safety Report 20877912 (Version 1)
Quarter: 2022Q2

REPORT INFORMATION
  Report Type: Spontaneous
  Country: US (occurrence: None)
  Receive Date: 20220526
  Receipt Date: 20220526
  Transmission Date: 20220721
  Serious: Yes (Death)
  Sender: FDA-Public Use
  Company Number: None

PATIENT
  Age: 90 Year
  Sex: Male
  Weight: 49.9 kg

DRUGS (6)
  1. TRELSTAR [Suspect]
     Active Substance: TRIPTORELIN PAMOATE
     Indication: Prostate cancer
     Dosage: OTHER FREQUENCY : Q12 WEEKS;?
     Route: 030
     Dates: end: 20220513
  2. SIMVASTATIN [Concomitant]
     Active Substance: SIMVASTATIN
  3. ATENOLOL [Concomitant]
     Active Substance: ATENOLOL
  4. CLOPIDOGREL BISULFATE [Concomitant]
     Active Substance: CLOPIDOGREL BISULFATE
  5. ASPIRIN [Concomitant]
     Active Substance: ASPIRIN
  6. AMLODIPINE AND ATORVASTATIN [Concomitant]
     Active Substance: AMLODIPINE BESYLATE\ATORVASTATIN CALCIUM

REACTIONS (1)
  - Death [None]
